FAERS Safety Report 5111136-4 (Version None)
Quarter: 2006Q3

REPORT INFORMATION
  Report Type: 
  Country: None (occurrence: None)
  Receive Date: 20060922
  Receipt Date: 20051003
  Transmission Date: 20061208
  Serious: No
  Sender: FDA-Public Use
  Company Number: US-GLAXOSMITHKLINE-A0576816A

PATIENT
  Age: 41 Year
  Sex: Male

DRUGS (1)
  1. ABREVA [Suspect]
     Dates: start: 20050928, end: 20050930

REACTIONS (6)
  - EYE PAIN [None]
  - HEADACHE [None]
  - HERPES SIMPLEX [None]
  - HYPOAESTHESIA FACIAL [None]
  - SCAB [None]
  - SWELLING FACE [None]
